FAERS Safety Report 16813093 (Version 1)
Quarter: 2019Q3

REPORT INFORMATION
  Report Type: Other
  Country: US (occurrence: US)
  Receive Date: 20190916
  Receipt Date: 20190916
  Transmission Date: 20191005
  Serious: No
  Sender: FDA-Public Use
  Company Number: US-LEADIANT BIOSCIENCES INC-2019STPI000070

PATIENT
  Sex: Female

DRUGS (1)
  1. MATULANE [Suspect]
     Active Substance: PROCARBAZINE HYDROCHLORIDE
     Indication: HODGKIN^S DISEASE
     Dosage: 100 MILLIGRAM, QD, FOR 10 DAUS AMD 50MG FOR 4 DAYS
     Route: 048
     Dates: start: 20181015

REACTIONS (2)
  - Dyspnoea [Unknown]
  - Urticaria [Unknown]
